FAERS Safety Report 7473772-X (Version None)
Quarter: 2011Q2

REPORT INFORMATION
  Report Type: 
  Country: None (occurrence: None)
  Receive Date: 20110511
  Receipt Date: 20110510
  Transmission Date: 20111010
  Serious: Yes (Death)
  Sender: FDA-Public Use
  Company Number: JP-ABBOTT-11P-087-0724658-00

PATIENT
  Sex: Male

DRUGS (3)
  1. HUMIRA [Suspect]
  2. HUMIRA [Suspect]
     Indication: CROHN'S DISEASE
     Dates: start: 20110315, end: 20110315
  3. HUMIRA [Suspect]

REACTIONS (1)
  - CARDIAC FAILURE [None]
